FAERS Safety Report 4509195-2 (Version None)
Quarter: 2004Q4

REPORT INFORMATION
  Report Type: 
  Country: None (occurrence: None)
  Receive Date: 20041025
  Receipt Date: 20031016
  Transmission Date: 20050328
  Serious: Yes (Other)
  Sender: FDA-Public Use
  Company Number: NSADSS2002012416

PATIENT
  Age: 73 Year
  Sex: Female
  Weight: 83.9154 kg

DRUGS (10)
  1. REMICADE [Suspect]
     Indication: RHEUMATOID ARTHRITIS
     Dosage: 1 IN 1 AS NECESSARY, INTRAVENOUS DRIP
     Route: 041
  2. METHOTREXATE [Concomitant]
  3. PREMARIN [Concomitant]
  4. PREDNISONE [Concomitant]
  5. SYNTHROID [Concomitant]
  6. POTASSIUM (POTASSIUM) [Concomitant]
  7. ROBAXIN [Concomitant]
  8. VICODIN [Concomitant]
  9. LISINOPRIL [Concomitant]
  10. SPIRONOLACTONE [Concomitant]

REACTIONS (6)
  - ARTHRALGIA [None]
  - BLOOD PRESSURE INCREASED [None]
  - CHEST PAIN [None]
  - DYSPNOEA [None]
  - SOMNOLENCE [None]
  - THERAPEUTIC RESPONSE DECREASED [None]
